FAERS Safety Report 24965965 (Version 1)
Quarter: 2025Q1

REPORT INFORMATION
  Report Type: Spontaneous
  Country: US (occurrence: US)
  Receive Date: 20250213
  Receipt Date: 20250213
  Transmission Date: 20250409
  Serious: Yes (Hospitalization, Other)
  Sender: SANOFI AVENTIS
  Company Number: US-SA-2025SA041969

PATIENT
  Age: 67 Year
  Sex: Female
  Weight: 86.36 kg

DRUGS (12)
  1. DUPIXENT [Suspect]
     Active Substance: DUPILUMAB
     Indication: Psoriasis
     Dosage: 300 MG QOW
     Route: 058
     Dates: start: 2024
  2. SKYRIZI [Concomitant]
     Active Substance: RISANKIZUMAB-RZAA
  3. VITAMIN D3 [Concomitant]
     Active Substance: CHOLECALCIFEROL
  4. POTASSIUM CHLORIDE [Concomitant]
     Active Substance: POTASSIUM CHLORIDE
  5. PREDNISONE [Concomitant]
     Active Substance: PREDNISONE
  6. ALBUTEROL [Concomitant]
     Active Substance: ALBUTEROL
  7. PANTOPRAZOLE [Concomitant]
     Active Substance: PANTOPRAZOLE
  8. AMIODARONE [Concomitant]
     Active Substance: AMIODARONE
  9. METOPROLOL SUCCINATE [Concomitant]
     Active Substance: METOPROLOL SUCCINATE
  10. ELIQUIS [Concomitant]
     Active Substance: APIXABAN
  11. ATORVASTATIN [Concomitant]
     Active Substance: ATORVASTATIN
  12. VITAMINS NOS [Concomitant]
     Active Substance: VITAMINS

REACTIONS (2)
  - Pneumonia [Unknown]
  - Product use in unapproved indication [Unknown]

NARRATIVE: CASE EVENT DATE: 20240101
